FAERS Safety Report 4988974-1 (Version None)
Quarter: 2006Q2

REPORT INFORMATION
  Report Type: 
  Country: None (occurrence: None)
  Receive Date: 20060425
  Receipt Date: 20060410
  Transmission Date: 20061013
  Serious: Yes (Death)
  Sender: FDA-Public Use
  Company Number: CLOF-10223

PATIENT
  Age: 73 Year
  Sex: Male

DRUGS (38)
  1. CLOLAR [Suspect]
     Indication: ACUTE MYELOID LEUKAEMIA
     Dosage: 84 MG QD X 5 IV
     Route: 042
     Dates: start: 20060223, end: 20060227
  2. CYTARABINE [Suspect]
     Indication: ACUTE MYELOID LEUKAEMIA
     Dosage: 2.1 G QD X 5 IV
     Route: 042
     Dates: start: 20060222, end: 20060226
  3. IPRATROPIUM BROMIDE [Concomitant]
  4. LEVALBUTEROL HCL [Concomitant]
  5. BACTRIM [Concomitant]
  6. MORPHINE [Concomitant]
  7. HALDOL [Concomitant]
  8. ACTIVASE [Concomitant]
  9. HYDROCORTISONE [Concomitant]
  10. AMIKACIN [Concomitant]
  11. POTASSIUM CHLORIDE [Concomitant]
  12. MAGNESIUM SULFATE [Concomitant]
  13. VENLAFAXINE HCL [Concomitant]
  14. AMLODIPINE [Concomitant]
  15. MEPERIDINE HCL [Concomitant]
  16. DIPHENHYDRAMINE HCL [Concomitant]
  17. AMPHOTERICIN B LIPID [Concomitant]
  18. CASPOFUNGIN [Concomitant]
  19. LEVOTHYROXINE SODIUM [Concomitant]
  20. ESOMEPRAZOLE [Concomitant]
  21. ACYCLOVIR [Concomitant]
  22. NYSTATIN [Concomitant]
  23. PROMETHAZINE [Concomitant]
  24. SUCRALFATE [Concomitant]
  25. PHYTONADIONE [Concomitant]
  26. LIDOCAINE [Concomitant]
  27. MIDAZOLAM HCL [Concomitant]
  28. FENTANYL [Concomitant]
  29. FUROSEMIDE [Concomitant]
  30. BENZONATATE [Concomitant]
  31. LEUKINE [Concomitant]
  32. NEUPOGEN [Concomitant]
  33. RIFAMPIN [Concomitant]
  34. VORICONAZOLE [Concomitant]
  35. VANCOMYCIN [Concomitant]
  36. DAPTOMYCIN [Concomitant]
  37. MEROPENEM [Concomitant]
  38. TRAMADOL HCL [Concomitant]

REACTIONS (5)
  - BONE MARROW FAILURE [None]
  - CELLULITIS [None]
  - NEUTROPENIA [None]
  - PNEUMONIA FUNGAL [None]
  - THROMBOCYTOPENIA [None]
